FAERS Safety Report 6720952-4 (Version None)
Quarter: 2010Q2

REPORT INFORMATION
  Report Type: 
  Country: None (occurrence: None)
  Receive Date: 20100510
  Receipt Date: 20091209
  Transmission Date: 20101027
  Serious: Yes (Hospitalization)
  Sender: FDA-Public Use
  Company Number: LEO-2010-00330

PATIENT
  Age: 77 Year
  Sex: Male

DRUGS (2)
  1. INNOHEP [Suspect]
     Indication: ARRHYTHMIA
     Dosage: 28000 IU (14000 IU, 2 IN1 D), SUBCUTANEOUS
     Route: 058
     Dates: start: 19990925, end: 19990926
  2. LOVENOX [Suspect]
     Dosage: 40 SUBCUTANEOUS
     Route: 058
     Dates: start: 19990927, end: 19990927

REACTIONS (7)
  - ANAEMIA [None]
  - GASTROINTESTINAL ULCER [None]
  - HAEMATEMESIS [None]
  - OFF LABEL USE [None]
  - OVERDOSE [None]
  - RENAL FAILURE [None]
  - THROMBOSIS [None]
